FAERS Safety Report 8125900-0 (Version None)
Quarter: 2012Q1

REPORT INFORMATION
  Report Type: 
  Country: None (occurrence: None)
  Receive Date: 20120209
  Receipt Date: 20120202
  Transmission Date: 20120608
  Serious: Yes (Hospitalization, Other)
  Sender: FDA-Public Use
  Company Number: US-ELI_LILLY_AND_COMPANY-US201110004488

PATIENT
  Sex: Female
  Weight: 96.145 kg

DRUGS (25)
  1. VENLAFAXINE [Concomitant]
     Dosage: 75 MG, UNK
  2. ADVAIR DISKUS 100/50 [Concomitant]
  3. XANAX [Concomitant]
     Dosage: 0.25 MG, PRN
  4. DIAZEPAM [Concomitant]
     Dosage: 10 MG, UNK
  5. BYETTA [Suspect]
     Dosage: UNK
  6. SEROQUEL [Concomitant]
     Dosage: 50 MG, UNK
  7. ALBUTEROL [Concomitant]
     Dosage: 17 G, UNK
  8. MORPHINE SULFATE [Concomitant]
     Dosage: 30 MG, UNK
  9. ACETAMINOPHEN [Concomitant]
     Dosage: 325 MG, UNK
  10. COZAAR [Concomitant]
     Dosage: 50 MG, UNK
  11. HYDROXYZINE HCL [Concomitant]
  12. LORTAB [Concomitant]
     Dosage: UNK, PRN
  13. SINGULAIR [Concomitant]
     Dosage: 10 MG, UNK
  14. MORPHINE [Concomitant]
     Dosage: 30 MG, UNK
  15. ACETAMINOPHEN PM [Concomitant]
  16. HYDROCODONE BITARTRATE AND ACETAMINOPHEN [Concomitant]
  17. PHENYLEPHRINE HCL [Concomitant]
     Dosage: 5 MG, UNK
  18. BENADRYL [Concomitant]
     Dosage: UNK, PRN
  19. VENLAFAXINE [Concomitant]
     Dosage: 150 MG, UNK
  20. CEPHALEXIN [Concomitant]
     Dosage: 500 MG, UNK
  21. PEPCID [Concomitant]
     Dosage: 40 MG, UNK
  22. VENLAFAXINE [Concomitant]
     Dosage: 75 MG, UNK
  23. DOXEPIN HCL [Concomitant]
     Dosage: 100 MG, UNK
  24. SEROQUEL [Concomitant]
     Dosage: 100 MG, UNK
  25. OXYGEN [Concomitant]

REACTIONS (6)
  - PANCREATITIS [None]
  - HYPERTENSION [None]
  - BLOOD CHOLESTEROL INCREASED [None]
  - PALPITATIONS [None]
  - CHRONIC OBSTRUCTIVE PULMONARY DISEASE [None]
  - PNEUMONIA [None]
